FAERS Safety Report 9375442 (Version 1)
Quarter: 2013Q2

REPORT INFORMATION
  Report Type: Spontaneous
  Country: US (occurrence: US)
  Receive Date: 20130628
  Receipt Date: 20130628
  Transmission Date: 20140414
  Serious: Yes (Disabling)
  Sender: FDA-Public Use
  Company Number: US-GLAXOSMITHKLINE-A1028815A

PATIENT
  Sex: 0

DRUGS (3)
  1. PROMACTA [Suspect]
     Indication: THROMBOCYTOPENIA
     Route: 048
     Dates: end: 201306
  2. PEGINTERFERON (NOS) [Concomitant]
  3. RIBAVIRIN [Concomitant]

REACTIONS (1)
  - Bone pain [Unknown]
